FAERS Safety Report 6710232-5 (Version None)
Quarter: 2010Q2

REPORT INFORMATION
  Report Type: 
  Country: None (occurrence: None)
  Receive Date: 20100504
  Receipt Date: 20100422
  Transmission Date: 20101027
  Serious: Yes (Death, Hospitalization, Other)
  Sender: FDA-Public Use
  Company Number: FR-GENZYME-POMP-1000859

PATIENT
  Sex: Female
  Weight: 6.28 kg

DRUGS (1)
  1. MYOZYME [Suspect]
     Indication: GLYCOGEN STORAGE DISEASE TYPE II
     Dosage: UNK
     Route: 042
     Dates: start: 20091101

REACTIONS (8)
  - ANAEMIA [None]
  - CARDIOPULMONARY FAILURE [None]
  - CARDIOVASCULAR INSUFFICIENCY [None]
  - GASTROENTERITIS ROTAVIRUS [None]
  - RESPIRATORY DISTRESS [None]
  - RESPIRATORY FAILURE [None]
  - STAPHYLOCOCCAL SEPSIS [None]
  - TREATMENT FAILURE [None]
